FAERS Safety Report 16511034 (Version 1)
Quarter: 2019Q3

REPORT INFORMATION
  Report Type: Spontaneous
  Country: GB (occurrence: GB)
  Receive Date: 20190702
  Receipt Date: 20190702
  Transmission Date: 20191004
  Serious: Yes (Hospitalization, Other)
  Sender: FDA-Public Use
  Company Number: GB-TEVA-2019-GB-1071231

PATIENT
  Age: 9 Year
  Sex: Male
  Weight: 27.66 kg

DRUGS (2)
  1. DESMOPRESSIN [Concomitant]
     Active Substance: DESMOPRESSIN
  2. OXYBUTYNIN HYDROCHLORIDE [Suspect]
     Active Substance: OXYBUTYNIN CHLORIDE
     Indication: ENURESIS
     Route: 048
     Dates: start: 20180426, end: 20180606

REACTIONS (7)
  - Insomnia [Recovering/Resolving]
  - Psychotic disorder [Recovering/Resolving]
  - Decreased appetite [Recovered/Resolved with Sequelae]
  - Nightmare [Unknown]
  - Restlessness [Unknown]
  - Anxiety [Not Recovered/Not Resolved]
  - Sensation of foreign body [Unknown]

NARRATIVE: CASE EVENT DATE: 20180525
